FAERS Safety Report 9988597 (Version 1)
Quarter: 2014Q1

REPORT INFORMATION
  Report Type: Report from Study
  Country: JP (occurrence: JP)
  Receive Date: 20140310
  Receipt Date: 20140310
  Transmission Date: 20141002
  Serious: Yes (Other)
  Sender: FDA-Public Use
  Company Number: JP-UCBSA-114315

PATIENT
  Age: 75 Year
  Sex: Female
  Weight: 55 kg

DRUGS (6)
  1. CIMZIA [Suspect]
     Indication: RHEUMATOID ARTHRITIS
     Route: 058
     Dates: start: 20130918, end: 20131030
  2. CIMZIA [Suspect]
     Indication: RHEUMATOID ARTHRITIS
     Dosage: 200MG SYRINGE
     Route: 058
     Dates: start: 20130808, end: 20130904
  3. CIMZIA [Suspect]
     Indication: RHEUMATOID ARTHRITIS
     Dosage: 200MG SYRINGE
     Route: 058
     Dates: start: 20130611, end: 20130709
  4. METOLATE [Suspect]
     Indication: RHEUMATOID ARTHRITIS
     Route: 048
  5. LORCAM [Concomitant]
     Dosage: 12MG DAILY
     Route: 048
  6. PREDNISOLONE [Concomitant]
     Dosage: 3MG DAILY
     Route: 048

REACTIONS (1)
  - Herpes zoster [Recovered/Resolved]
